FAERS Safety Report 8145687-5 (Version None)
Quarter: 2012Q1

REPORT INFORMATION
  Report Type: 
  Country: None (occurrence: None)
  Receive Date: 20120217
  Receipt Date: 20110830
  Transmission Date: 20120608
  Serious: No
  Sender: FDA-Public Use
  Company Number: US-ALLERGAN-1111669US

PATIENT
  Age: 13 Year
  Sex: Female

DRUGS (4)
  1. DUAC [Concomitant]
     Indication: PRODUCT USED FOR UNKNOWN INDICATION
  2. ZYRTEC [Concomitant]
     Indication: PRODUCT USED FOR UNKNOWN INDICATION
  3. PEPCID [Concomitant]
     Indication: PRODUCT USED FOR UNKNOWN INDICATION
  4. TAZORAC [Suspect]
     Indication: PRODUCT USED FOR UNKNOWN INDICATION
     Dosage: A PEA SIZED AMOUNT
     Route: 061
     Dates: start: 20110801, end: 20110801

REACTIONS (2)
  - URTICARIA [None]
  - APPLICATION SITE URTICARIA [None]
